FAERS Safety Report 18299565 (Version 1)
Quarter: 2020Q3

REPORT INFORMATION
  Report Type: Spontaneous
  Country: US (occurrence: US)
  Receive Date: 20200922
  Receipt Date: 20200922
  Transmission Date: 20201103
  Serious: Yes (Death, Other)
  Sender: FDA-Public Use
  Company Number: US-PURDUE-USA-2020-0166182

PATIENT
  Age: 5 Month
  Sex: Male

DRUGS (1)
  1. BUPRENORPHINE (SIMILAR TO NDA 21?306) [Suspect]
     Active Substance: BUPRENORPHINE
     Indication: PRODUCT USED FOR UNKNOWN INDICATION
     Dosage: UNK
     Route: 064

REACTIONS (3)
  - Foetal exposure during pregnancy [Recovered/Resolved]
  - General physical health deterioration [Fatal]
  - Drug withdrawal convulsions [Fatal]
